FAERS Safety Report 6522818-1 (Version None)
Quarter: 2009Q4

REPORT INFORMATION
  Report Type: 
  Country: None (occurrence: None)
  Receive Date: 20091230
  Receipt Date: 20091218
  Transmission Date: 20100525
  Serious: Yes (Death)
  Sender: FDA-Public Use
  Company Number: DE-MYLANLABS-2009S1021690

PATIENT
  Age: 75 Year
  Sex: Female

DRUGS (2)
  1. MIRTAZAPINE [Suspect]
     Indication: DEPRESSION
     Dosage: DAILY DOSE: 1 DF DOSAGE FORM EVERY DAYS
  2. LORAZEPAM [Suspect]
     Indication: RESTLESSNESS
     Dosage: DAILY DOSE: 1 DF DOSAGE FORM EVERY DAYS

REACTIONS (2)
  - ELECTROCARDIOGRAM QT PROLONGED [None]
  - LONG QT SYNDROME [None]
